FAERS Safety Report 8544451-2 (Version None)
Quarter: 2012Q3

REPORT INFORMATION
  Report Type: 
  Country: None (occurrence: None)
  Receive Date: 20120719
  Receipt Date: 20120719
  Transmission Date: 20120928
  Serious: Yes (Life-Threatening, Other)
  Sender: FDA-Public Use
  Company Number: None

PATIENT
  Sex: Female
  Weight: 72.5755 kg

DRUGS (2)
  1. BETASERON [Suspect]
     Indication: MULTIPLE SCLEROSIS
     Dosage: 0.25 MG QOD SQ
     Route: 058
     Dates: start: 20091101, end: 20101101
  2. BETASERON [Suspect]
     Indication: MULTIPLE SCLEROSIS
     Dosage: 0.25 MG QOD SQ
     Route: 058
     Dates: start: 20120101, end: 20120401

REACTIONS (3)
  - FEELING ABNORMAL [None]
  - DEPRESSED MOOD [None]
  - DEPRESSION [None]
